FAERS Safety Report 18711353 (Version 3)
Quarter: 2021Q1

REPORT INFORMATION
  Report Type: Spontaneous
  Country: US (occurrence: US)
  Receive Date: 20210107
  Receipt Date: 20210227
  Transmission Date: 20210419
  Serious: Yes (Life-Threatening, Hospitalization, Disabling, Other)
  Sender: FDA-Public Use
  Company Number: US-009507513-2101USA000838

PATIENT
  Age: 81 Year
  Sex: Female
  Weight: 70.3 kg

DRUGS (9)
  1. SYNTHROID [Suspect]
     Active Substance: LEVOTHYROXINE SODIUM
     Dosage: 125MCG (125MCG, 1 IN 1 D)
     Route: 048
     Dates: start: 2012
  2. SOTALOL. [Concomitant]
     Active Substance: SOTALOL
     Indication: CARDIAC DISORDER
  3. TYLENOL [Concomitant]
     Active Substance: ACETAMINOPHEN
     Indication: PAIN
     Dosage: AS NEEDED
  4. SYNTHROID [Suspect]
     Active Substance: LEVOTHYROXINE SODIUM
     Indication: HYPOTHYROIDISM
     Dosage: 137 MCG (137 MCG, 1 IN 1 D)
     Route: 048
     Dates: start: 2012
  5. SYNTHROID [Suspect]
     Active Substance: LEVOTHYROXINE SODIUM
     Dosage: 137 MCG (137 MCG, 1 IN 1 D)
     Route: 048
     Dates: start: 2014, end: 2020
  6. KEYTRUDA [Suspect]
     Active Substance: PEMBROLIZUMAB
     Dosage: UNK
     Route: 065
  7. NORVASC [Concomitant]
     Active Substance: AMLODIPINE BESYLATE
     Indication: HYPERTENSION
  8. ALPRAZOLAM. [Concomitant]
     Active Substance: ALPRAZOLAM
     Indication: SLEEP DISORDER
  9. AMLODIPINE [Concomitant]
     Active Substance: AMLODIPINE BESYLATE
     Indication: HYPERTENSION

REACTIONS (22)
  - Intestinal resection [Unknown]
  - Arthropathy [Not Recovered/Not Resolved]
  - Post procedural complication [Unknown]
  - Weight decreased [Recovered/Resolved]
  - Post procedural infection [Unknown]
  - Septic shock [Unknown]
  - Mobility decreased [Unknown]
  - Headache [Unknown]
  - Malignant neoplasm progression [Not Recovered/Not Resolved]
  - Pneumonia [Unknown]
  - Constipation [Recovered/Resolved]
  - Fatigue [Unknown]
  - Arthralgia [Unknown]
  - Drug hypersensitivity [Unknown]
  - Nerve injury [Not Recovered/Not Resolved]
  - Anxiety [Unknown]
  - COVID-19 [Unknown]
  - Acute respiratory failure [Unknown]
  - Muscular weakness [Unknown]
  - Muscle disorder [Not Recovered/Not Resolved]
  - Gastrointestinal procedural complication [Unknown]
  - Memory impairment [Unknown]

NARRATIVE: CASE EVENT DATE: 2019
